APPROVED DRUG PRODUCT: DOPAMINE HYDROCHLORIDE
Active Ingredient: DOPAMINE HYDROCHLORIDE
Strength: 40MG/ML
Dosage Form/Route: INJECTABLE;INJECTION
Application: A074403 | Product #001
Applicant: HOSPIRA INC
Approved: May 23, 1996 | RLD: No | RS: No | Type: DISCN